FAERS Safety Report 9602490 (Version 1)
Quarter: 2013Q4

REPORT INFORMATION
  Report Type: Spontaneous
  Country: US (occurrence: US)
  Receive Date: 20131007
  Receipt Date: 20131007
  Transmission Date: 20140711
  Serious: Yes (Other)
  Sender: FDA-Public Use
  Company Number: US-SA-2013SA095672

PATIENT
  Age: 78 Year
  Sex: Female

DRUGS (1)
  1. ALLEGRA [Suspect]
     Indication: HYPERSENSITIVITY
     Dosage: START DATE: ABOUT THREE YEARS AGO
     Route: 048

REACTIONS (1)
  - Squamous cell carcinoma of skin [Unknown]
